FAERS Safety Report 24336432 (Version 1)
Quarter: 2024Q3

REPORT INFORMATION
  Report Type: Report from Study
  Country: US (occurrence: US)
  Receive Date: 20240919
  Receipt Date: 20240919
  Transmission Date: 20241016
  Serious: No
  Sender: ROCHE
  Company Number: US-ROCHE-3564946

PATIENT
  Age: 66 Year
  Sex: Female

DRUGS (2)
  1. TAMIFLU [Suspect]
     Active Substance: OSELTAMIVIR PHOSPHATE
     Indication: Product used for unknown indication
     Route: 065
  2. XOLAIR [Concomitant]
     Active Substance: OMALIZUMAB
     Indication: Idiopathic urticaria
     Dosage: PRE FILLED SYRINGE, INJECT 2ML (300MG TOTAL) SUBCUTANEOUSLY EVERY 28 DAY(S)
     Route: 058

REACTIONS (1)
  - Drug hypersensitivity [Unknown]
